FAERS Safety Report 6249462-8 (Version None)
Quarter: 2009Q2

REPORT INFORMATION
  Report Type: 
  Country: None (occurrence: None)
  Receive Date: 20090629
  Receipt Date: 20090616
  Transmission Date: 20091009
  Serious: Yes (Death, Hospitalization)
  Sender: FDA-Public Use
  Company Number: A0793828A

PATIENT
  Age: 47 Year
  Sex: Male

DRUGS (1)
  1. AVANDAMET [Suspect]
     Route: 065
     Dates: start: 20061001, end: 20070301

REACTIONS (1)
  - DEATH [None]
